FAERS Safety Report 13707658 (Version 1)
Quarter: 2017Q2

REPORT INFORMATION
  Report Type: Spontaneous
  Country: FR (occurrence: FR)
  Receive Date: 20170630
  Receipt Date: 20170630
  Transmission Date: 20170830
  Serious: Yes (Other)
  Sender: FDA-Public Use
  Company Number: FR-PFIZER INC-2017278307

PATIENT
  Age: 57 Year
  Sex: Female

DRUGS (12)
  1. CUBICIN [Suspect]
     Active Substance: DAPTOMYCIN
     Indication: OSTEITIS
     Dosage: 10 MG/KG, 1X/DAY
     Route: 042
     Dates: start: 20170511, end: 20170521
  2. METFORMIN [Concomitant]
     Active Substance: METFORMIN HYDROCHLORIDE
     Indication: TYPE 2 DIABETES MELLITUS
     Dosage: 1000 MG, 2X/DAY
     Route: 048
  3. DIAMICRON [Concomitant]
     Active Substance: GLICLAZIDE
     Dosage: 1 DF, 1X/DAY
  4. OFLOXACINE [Concomitant]
     Active Substance: OFLOXACIN
     Indication: OSTEITIS
     Dosage: UNK
     Dates: start: 20170510, end: 20170511
  5. VENTOLINE /00139502/ [Concomitant]
     Dosage: UNK UNK, AS NEEDED
  6. TRULICITY [Concomitant]
     Active Substance: DULAGLUTIDE
     Indication: TYPE 2 DIABETES MELLITUS
     Dosage: 1.5 MG, ONCE MONDAY MIDDAY AS NEEDED
     Route: 058
  7. RIFADINE /00146901/ [Concomitant]
     Active Substance: RIFAMPIN
     Dosage: UNK
     Dates: start: 20170512, end: 20170517
  8. DOLIPRANE [Concomitant]
     Active Substance: ACETAMINOPHEN
     Dosage: UNK UNK, AS NEEDED
  9. GLICLAZID MYLAN [Concomitant]
     Indication: TYPE 2 DIABETES MELLITUS
     Dosage: 30 MG, 1X/DAY
     Route: 048
  10. TOUJEO [Concomitant]
     Active Substance: INSULIN GLARGINE
     Indication: TYPE 2 DIABETES MELLITUS
     Dosage: 4 IU, 1X/DAY
     Route: 058
  11. DALACINE [Suspect]
     Active Substance: CLINDAMYCIN HYDROCHLORIDE
     Indication: OSTEITIS
     Dosage: 600 MG, 3X/DAY
     Route: 048
     Dates: start: 20170517, end: 20170522
  12. AMOXICILLIN CLAVULANIC ACID [Concomitant]
     Active Substance: AMOXICILLIN\CLAVULANIC ACID
     Indication: OSTEITIS
     Dosage: UNK
     Dates: start: 20170510, end: 20170510

REACTIONS (1)
  - Rhabdomyolysis [Recovered/Resolved]

NARRATIVE: CASE EVENT DATE: 20170522
